FAERS Safety Report 14527135 (Version 1)
Quarter: 2018Q1

REPORT INFORMATION
  Report Type: Spontaneous
  Country: US (occurrence: US)
  Receive Date: 20180212
  Receipt Date: 20180212
  Transmission Date: 20180509
  Serious: No
  Sender: FDA-Public Use
  Company Number: None

PATIENT
  Age: 56 Year
  Sex: Female
  Weight: 74.25 kg

DRUGS (1)
  1. OMEPRAZOLE DR 40 MG CAPSULE [Suspect]
     Active Substance: OMEPRAZOLE
     Indication: DYSPEPSIA
     Dosage: ?          QUANTITY:30 CAPSULE(S);?
     Route: 048
     Dates: start: 20180116, end: 20180210

REACTIONS (8)
  - Pulmonary congestion [None]
  - Lethargy [None]
  - Oropharyngeal pain [None]
  - Lymphadenopathy [None]
  - Pyrexia [None]
  - Chills [None]
  - Neck pain [None]
  - Sneezing [None]

NARRATIVE: CASE EVENT DATE: 20180207
